FAERS Safety Report 26139343 (Version 1)
Quarter: 2025Q4

REPORT INFORMATION
  Report Type: Spontaneous
  Country: EU (occurrence: EU)
  Receive Date: 20251210
  Receipt Date: 20251210
  Transmission Date: 20260118
  Serious: Yes (Hospitalization, Other)
  Sender: AMGEN
  Company Number: EU-AMGEN-DEUSP2025238245

PATIENT
  Age: 13 Year
  Sex: Male

DRUGS (1)
  1. XGEVA [Suspect]
     Active Substance: DENOSUMAB
     Indication: Aneurysmal bone cyst
     Dosage: FOUR DOSES IN EIGHT MONTHS
     Route: 058

REACTIONS (8)
  - Renal impairment [Recovered/Resolved]
  - Hypercalcaemia [Recovered/Resolved]
  - Rebound effect [Recovered/Resolved]
  - Nephrocalcinosis [Recovered/Resolved]
  - Osteosclerosis [Recovered/Resolved]
  - Kidney enlargement [Recovered/Resolved]
  - Bone marrow oedema [Recovered/Resolved]
  - Off label use [Unknown]
